FAERS Safety Report 4656814-6 (Version None)
Quarter: 2005Q2

REPORT INFORMATION
  Report Type: 
  Country: None (occurrence: None)
  Receive Date: 20050505
  Receipt Date: 20050428
  Transmission Date: 20051028
  Serious: Yes (Hospitalization)
  Sender: FDA-Public Use
  Company Number: 2005PK00756

PATIENT
  Age: 74 Year
  Sex: Female

DRUGS (12)
  1. ZESTRIL [Suspect]
     Indication: HYPERTENSION
     Dosage: 30 MG DAILY PO
     Route: 048
     Dates: start: 20030516, end: 20050401
  2. ALDOZONE [Suspect]
     Indication: HYPERTENSION
     Dosage: 1 DF DSAILY PO
     Route: 048
     Dates: end: 20050401
  3. TOREM /GFR/ [Suspect]
     Indication: HYPERTENSION
     Dosage: 5 MG DAILY PO
     Route: 048
     Dates: end: 20050401
  4. BELOC [Concomitant]
  5. ZOCOR [Concomitant]
  6. ASPIRIN [Concomitant]
  7. SINTROM [Concomitant]
  8. CORVATON [Concomitant]
  9. SEROPRAM [Concomitant]
  10. NEURONTIN [Concomitant]
  11. DIAMICRON [Concomitant]
  12. DEPONIT [Concomitant]

REACTIONS (7)
  - CONTUSION [None]
  - DRUG INTERACTION [None]
  - FALL [None]
  - HAEMODIALYSIS [None]
  - HYPERKALAEMIA [None]
  - METABOLIC ACIDOSIS [None]
  - RENAL FAILURE ACUTE [None]
